FAERS Safety Report 7610977-9 (Version None)
Quarter: 2011Q3

REPORT INFORMATION
  Report Type: 
  Country: None (occurrence: None)
  Receive Date: 20110715
  Receipt Date: 20110712
  Transmission Date: 20111222
  Serious: Yes (Hospitalization)
  Sender: FDA-Public Use
  Company Number: MX-PFIZER INC-2011155918

PATIENT
  Age: 57 Year
  Sex: Female
  Weight: 64 kg

DRUGS (2)
  1. GEODON [Suspect]
     Indication: SCHIZOPHRENIA
     Dosage: 20 MG, SINGLE
     Route: 030
     Dates: start: 20110707, end: 20110707
  2. GEODON [Suspect]
     Dosage: 60 MG, SINGLE
     Route: 048
     Dates: start: 20110708, end: 20110708

REACTIONS (3)
  - RASH GENERALISED [None]
  - FLUID RETENTION [None]
  - SWELLING [None]
